FAERS Safety Report 20977262 (Version 3)
Quarter: 2022Q2

REPORT INFORMATION
  Report Type: Spontaneous
  Country: CN (occurrence: CN)
  Receive Date: 20220617
  Receipt Date: 20220622
  Transmission Date: 20220720
  Serious: Yes (Death)
  Sender: FDA-Public Use
  Company Number: CN-GE HEALTHCARE-2022CSU004191

PATIENT
  Age: 71 Year
  Sex: Female
  Weight: 65 kg

DRUGS (6)
  1. OMNIPAQUE [Suspect]
     Active Substance: IOHEXOL
     Indication: Computerised tomogram neck
     Dosage: 80 ML AT 2.7 ML/SECOND, ONCE
     Route: 042
     Dates: start: 20220613, end: 20220613
  2. OMNIPAQUE [Suspect]
     Active Substance: IOHEXOL
     Indication: Computerised tomogram
  3. OMNIPAQUE [Suspect]
     Active Substance: IOHEXOL
     Indication: Small cell lung cancer
  4. LANDIOLOL HYDROCHLORIDE [Concomitant]
     Active Substance: LANDIOLOL HYDROCHLORIDE
     Indication: Tachycardia
     Dosage: 500 MG, IV PUMP INJECTION, ST
     Dates: start: 20220322, end: 20220322
  5. CARBOPLATIN [Concomitant]
     Active Substance: CARBOPLATIN
     Indication: Small cell lung cancer
     Dosage: 435 MG, QD
     Route: 041
     Dates: start: 20211228, end: 20220613
  6. ETOPOSIDE [Concomitant]
     Active Substance: ETOPOSIDE
     Indication: Small cell lung cancer
     Dosage: 80 MG, QD
     Route: 041
     Dates: start: 20211228, end: 20220613

REACTIONS (2)
  - Anaphylactic shock [Fatal]
  - Myocardial infarction [Fatal]

NARRATIVE: CASE EVENT DATE: 20220613
